FAERS Safety Report 7744369-9 (Version None)
Quarter: 2011Q3

REPORT INFORMATION
  Report Type: 
  Country: None (occurrence: None)
  Receive Date: 20110908
  Receipt Date: 20110823
  Transmission Date: 20111222
  Serious: Yes (Death, Hospitalization)
  Sender: FDA-Public Use
  Company Number: FK201101798

PATIENT
  Age: 43 Year
  Sex: Female

DRUGS (2)
  1. FLUOROURACIL [Suspect]
     Indication: NEOPLASM MALIGNANT
     Dosage: 5250 MG, INTRAVENOUS (NOT OTHERWISE SPECIFIED)
     Route: 042
  2. PLATINOL-AQ [Suspect]
     Dosage: 100 MG, INTRAVENOUS (NOT OTHERWISE SPECIFIED)
     Route: 042

REACTIONS (10)
  - PANCYTOPENIA [None]
  - INCORRECT DRUG ADMINISTRATION DURATION [None]
  - MUCOSAL INFLAMMATION [None]
  - HAEMODYNAMIC INSTABILITY [None]
  - MULTI-ORGAN FAILURE [None]
  - MEDICATION ERROR [None]
  - VOMITING [None]
  - NAUSEA [None]
  - THROAT IRRITATION [None]
  - TOXICITY TO VARIOUS AGENTS [None]
